FAERS Safety Report 7043059-8 (Version None)
Quarter: 2010Q4

REPORT INFORMATION
  Report Type: 
  Country: None (occurrence: None)
  Receive Date: 20101013
  Receipt Date: 20101007
  Transmission Date: 20110411
  Serious: Yes (Hospitalization, Other)
  Sender: FDA-Public Use
  Company Number: US-MERCK-0902USA01605

PATIENT
  Age: 51 Year
  Sex: Female
  Weight: 68 kg

DRUGS (1)
  1. FOSAMAX [Suspect]
     Indication: OSTEOPOROSIS
     Route: 048
     Dates: start: 19990101, end: 20070901

REACTIONS (33)
  - ABSCESS [None]
  - ARTHROPATHY [None]
  - ATELECTASIS [None]
  - BONE DENSITY DECREASED [None]
  - BONE DISORDER [None]
  - CALCULUS URETERIC [None]
  - CHEST PAIN [None]
  - COMPLEX REGIONAL PAIN SYNDROME [None]
  - CORONARY ARTERY DISEASE [None]
  - COUGH [None]
  - FLANK PAIN [None]
  - FRACTURE [None]
  - GOITRE [None]
  - GRANULOMA [None]
  - HAEMANGIOMA OF LIVER [None]
  - HEPATIC ENZYME INCREASED [None]
  - HYDRONEPHROSIS [None]
  - HYPERTENSION [None]
  - IMPAIRED HEALING [None]
  - LUNG NEOPLASM [None]
  - ORAL DISORDER [None]
  - ORAL PAIN [None]
  - OSTEOARTHRITIS [None]
  - OSTEONECROSIS OF JAW [None]
  - PERIODONTAL DISEASE [None]
  - PLEURITIC PAIN [None]
  - PULMONARY FIBROSIS [None]
  - PULMONARY FUNCTION TEST ABNORMAL [None]
  - RENAL COLIC [None]
  - RHEUMATOID ARTHRITIS [None]
  - RHINITIS ALLERGIC [None]
  - SARCOIDOSIS [None]
  - THYROIDITIS [None]
